FAERS Safety Report 9900029 (Version 2)
Quarter: 2014Q2

REPORT INFORMATION
  Report Type: Spontaneous
  Country: US (occurrence: US)
  Receive Date: 20140214
  Receipt Date: 20140515
  Transmission Date: 20141212
  Serious: No
  Sender: FDA-Public Use
  Company Number: US-VIVUS-2014V1000018

PATIENT
  Age: 56 Year
  Sex: Male

DRUGS (1)
  1. QSYMIA [Suspect]
     Indication: WEIGHT DECREASED
     Dosage: USED THIS DRUG FOR 18-21 DAYS, START DATE JUNE 01, 2013 / STOP DATE JULY 31, 2013 (APPROXIMATE DATES
     Dates: start: 201306, end: 201307

REACTIONS (11)
  - Aggression [Unknown]
  - Dehydration [Unknown]
  - Hyperthermia [Unknown]
  - Anger [Unknown]
  - Hypoaesthesia [Unknown]
  - Paraesthesia [Unknown]
  - Dysgeusia [Unknown]
  - Constipation [Unknown]
  - Dizziness [Unknown]
  - Fatigue [Unknown]
  - Inappropriate schedule of drug administration [Unknown]
